FAERS Safety Report 16887670 (Version 2)
Quarter: 2019Q4

REPORT INFORMATION
  Report Type: Spontaneous
  Country: SE (occurrence: SE)
  Receive Date: 20191005
  Receipt Date: 20191013
  Transmission Date: 20200122
  Serious: Yes (Hospitalization, Other)
  Sender: FDA-Public Use
  Company Number: SE-AUROBINDO-AUR-APL-2019-064081

PATIENT
  Sex: Female

DRUGS (11)
  1. CISORDINOL [Suspect]
     Active Substance: ZUCLOPENTHIXOL
     Indication: PRODUCT USED FOR UNKNOWN INDICATION
     Dosage: 1 DOSAGE FORM, IN TOTAL (UNCLEAR AMOUNT)
     Route: 048
     Dates: start: 20181014, end: 20181014
  2. LAMOTRIGINE. [Suspect]
     Active Substance: LAMOTRIGINE
     Indication: PRODUCT USED FOR UNKNOWN INDICATION
     Dosage: 1 DOSAGE FORM, IN TOTAL (UNCLEAR AMOUNT)
     Route: 048
     Dates: start: 20181014, end: 20181014
  3. SERTRALINE [Suspect]
     Active Substance: SERTRALINE HYDROCHLORIDE
     Indication: PRODUCT USED FOR UNKNOWN INDICATION
     Dosage: 1 DOSAGE FORM, IN TOTAL (UNCLEAR AMOUNT)
     Route: 048
     Dates: start: 20181014, end: 20181014
  4. PARGITAN [Suspect]
     Active Substance: TRIHEXYPHENIDYL HYDROCHLORIDE
     Indication: PRODUCT USED FOR UNKNOWN INDICATION
     Dosage: 1 DOSAGE FORM, IN TOTAL (UNCLEAR AMOUNT)
     Route: 048
     Dates: start: 20181014, end: 20181014
  5. STESOLID [Suspect]
     Active Substance: DIAZEPAM
     Indication: PRODUCT USED FOR UNKNOWN INDICATION
     Dosage: 80 MILLIGRAM (1 TOTAL) (4 STESOLID AT 20 MG)
     Route: 048
     Dates: start: 20181014, end: 20181014
  6. OLANZAPINE. [Suspect]
     Active Substance: OLANZAPINE
     Indication: PRODUCT USED FOR UNKNOWN INDICATION
     Dosage: 5 MILLIGRAM 1 TOTAL (1 TR IN 5 MG)
     Route: 048
     Dates: start: 20181014, end: 20181014
  7. ARIPIPRAZOLE. [Suspect]
     Active Substance: ARIPIPRAZOLE
     Indication: PRODUCT USED FOR UNKNOWN INDICATION
     Dosage: 1 DOSAGE FORM, IN TOTAL (UNCLEAR AMOUNT)
     Route: 048
     Dates: start: 20181014, end: 20181014
  8. NALTREXONE [Suspect]
     Active Substance: NALTREXONE
     Indication: PRODUCT USED FOR UNKNOWN INDICATION
     Dosage: 1 DOSAGE FORM, IN TOTAL (UNCLEAR AMOUNT)
     Route: 048
     Dates: start: 20181014, end: 20181014
  9. ALIMEMAZINE [Suspect]
     Active Substance: TRIMEPRAZINE
     Indication: PRODUCT USED FOR UNKNOWN INDICATION
     Dosage: 1 DOSAGE FORM, IN TOTAL (UNCLEAR AMOUNT)
     Route: 048
     Dates: start: 20181014, end: 20181014
  10. LERGIGAN (PROMETHAZINE HYDROCHLORIDE) [Suspect]
     Active Substance: PROMETHAZINE HYDROCHLORIDE
     Indication: PRODUCT USED FOR UNKNOWN INDICATION
     Dosage: 900 MILLIGRAM (1 TOTAL) (36 THE ALLERGY TO 25 MG)
     Route: 048
     Dates: start: 20181014, end: 20181014
  11. MELATONIN [Suspect]
     Active Substance: MELATONIN
     Indication: PRODUCT USED FOR UNKNOWN INDICATION
     Dosage: 1 DOSAGE FORM, IN TOTAL (UNCLEAR AMOUNT)
     Route: 048
     Dates: start: 20181014, end: 20181014

REACTIONS (4)
  - Intentional self-injury [Unknown]
  - Intentional overdose [Unknown]
  - Fatigue [Unknown]
  - Depressed level of consciousness [Unknown]

NARRATIVE: CASE EVENT DATE: 201810
